FAERS Safety Report 6872703-0 (Version None)
Quarter: 2010Q3

REPORT INFORMATION
  Report Type: 
  Country: None (occurrence: None)
  Receive Date: 20100723
  Receipt Date: 20081030
  Transmission Date: 20110219
  Serious: No
  Sender: FDA-Public Use
  Company Number: US-PFIZER INC-2008092253

PATIENT
  Sex: Female
  Weight: 81.8 kg

DRUGS (11)
  1. CHANTIX [Suspect]
     Indication: SMOKING CESSATION THERAPY
     Route: 048
     Dates: start: 20081023
  2. SIMVASTATIN [Concomitant]
  3. FLUTICASONE PROPIONATE [Concomitant]
  4. ALBUTEROL [Concomitant]
  5. KLONOPIN [Concomitant]
  6. LUNESTA [Concomitant]
  7. NEURONTIN [Concomitant]
  8. ABILIFY [Concomitant]
  9. EFFEXOR [Concomitant]
  10. NOVOLOG [Concomitant]
  11. INSULIN DETEMIR [Concomitant]

REACTIONS (3)
  - BLOOD CHOLESTEROL INCREASED [None]
  - PRURITUS [None]
  - RASH [None]
